FAERS Safety Report 9434195 (Version 1)
Quarter: 2013Q3

REPORT INFORMATION
  Report Type: Spontaneous
  Country: US (occurrence: None)
  Receive Date: 20130730
  Receipt Date: 20130730
  Transmission Date: 20140515
  Serious: Yes (Hospitalization)
  Sender: FDA-Public Use
  Company Number: None

PATIENT
  Age: 70 Year
  Sex: Female
  Weight: 57.61 kg

DRUGS (1)
  1. XARELTO [Suspect]
     Indication: THROMBOSIS PROPHYLAXIS
     Dosage: 20 MG DAILY ORAL
     Route: 048
     Dates: start: 20130605, end: 20130727

REACTIONS (2)
  - Haematuria [None]
  - Flank pain [None]
